FAERS Safety Report 14009256 (Version 1)
Quarter: 2017Q3

REPORT INFORMATION
  Report Type: Spontaneous
  Country: CA (occurrence: CA)
  Receive Date: 20170925
  Receipt Date: 20170925
  Transmission Date: 20171128
  Serious: Yes (Death)
  Sender: FDA-Public Use
  Company Number: CA-PFIZER INC-2017408850

PATIENT
  Age: 53 Year
  Sex: Male
  Weight: 69 kg

DRUGS (12)
  1. FLUOROURACIL. [Suspect]
     Active Substance: FLUOROURACIL
     Dosage: 4425 MG, UNK
     Dates: start: 20170810
  2. KEPPRA [Concomitant]
     Active Substance: LEVETIRACETAM
     Dosage: 500 MG, 2X/DAY
     Route: 048
  3. ONDASETRON [Concomitant]
     Active Substance: ONDANSETRON
     Dosage: 8 MG, 2X/DAY X 1 DAY
     Route: 048
  4. OXALIPLATIN. [Suspect]
     Active Substance: OXALIPLATIN
     Indication: CHEMOTHERAPY
     Dosage: 155 MG, SINGLE
     Dates: start: 20170810
  5. CEPTROCIN [Concomitant]
     Dosage: 2 G, 2X/DAY
     Route: 042
  6. CLOXACILLIN [Concomitant]
     Active Substance: CLOXACILLIN
     Dosage: 2 G, EVERY 4 HOURS
  7. FLUOROURACIL. [Suspect]
     Active Substance: FLUOROURACIL
     Indication: CHEMOTHERAPY
     Dosage: 750 MG, UNK
     Dates: start: 20170810
  8. LEUCOVORIN. [Suspect]
     Active Substance: LEUCOVORIN
     Indication: CHEMOTHERAPY
     Dosage: 740 MG, SINGLE
     Route: 042
  9. DEXAMETHASONE. [Concomitant]
     Active Substance: DEXAMETHASONE
     Dosage: 8 MG, 1 HOUR PRIOR TO CHEMO
  10. AMLODIPINE [Concomitant]
     Active Substance: AMLODIPINE BESYLATE
     Dosage: 5 MG, DAILY
     Route: 048
  11. RANITIDINE. [Concomitant]
     Active Substance: RANITIDINE
     Dosage: 750 MG, 2X/DAY
     Route: 048
  12. TINZAPARIN [Concomitant]
     Active Substance: TINZAPARIN
     Dosage: 14000 IU, DAILY
     Route: 058

REACTIONS (4)
  - Ventricular fibrillation [Fatal]
  - Hypoaesthesia [Unknown]
  - Hyperhidrosis [Unknown]
  - Chest pain [Unknown]

NARRATIVE: CASE EVENT DATE: 20170816
